FAERS Safety Report 23756611 (Version 4)
Quarter: 2024Q3

REPORT INFORMATION
  Report Type: Spontaneous
  Country: PR (occurrence: PR)
  Receive Date: 20240418
  Receipt Date: 20240807
  Transmission Date: 20241017
  Serious: No
  Sender: PFIZER
  Company Number: PR-PFIZER INC-202400074083

PATIENT
  Age: 10 Year
  Sex: Female
  Weight: 29.478 kg

DRUGS (1)
  1. GENOTROPIN [Suspect]
     Active Substance: SOMATROPIN
     Indication: Short stature
     Dosage: 0.8 MG, EVERY NIGHT
     Dates: start: 20240312

REACTIONS (3)
  - Illness [Unknown]
  - Drug dose omission by device [Unknown]
  - Device leakage [Unknown]

NARRATIVE: CASE EVENT DATE: 20240301
